FAERS Safety Report 5581745-7 (Version None)
Quarter: 2008Q1

REPORT INFORMATION
  Report Type: 
  Country: None (occurrence: None)
  Receive Date: 20080104
  Receipt Date: 20071227
  Transmission Date: 20080703
  Serious: Yes (Hospitalization, Other)
  Sender: FDA-Public Use
  Company Number: US-ASTRAZENECA-2007UW28992

PATIENT
  Age: 14742 Day
  Sex: Male
  Weight: 100 kg

DRUGS (1)
  1. SEROQUEL [Suspect]
     Route: 048

REACTIONS (3)
  - BLINDNESS [None]
  - DIABETES MELLITUS [None]
  - DYSPNOEA [None]
